FAERS Safety Report 25615374 (Version 1)
Quarter: 2025Q3

REPORT INFORMATION
  Report Type: Other
  Country: QA (occurrence: QA)
  Receive Date: 20250729
  Receipt Date: 20250729
  Transmission Date: 20251020
  Serious: Yes (Life-Threatening, Hospitalization, Other)
  Sender: COREPHARMA LLC
  Company Number: QA-CorePharma LLC-2181401

PATIENT
  Age: 28 Year
  Sex: Male

DRUGS (2)
  1. SUMATRIPTAN SUCCINATE [Suspect]
     Active Substance: SUMATRIPTAN SUCCINATE
     Indication: Migraine
  2. AMITRIPTYLINE [Suspect]
     Active Substance: AMITRIPTYLINE

REACTIONS (1)
  - Brugada syndrome [Recovered/Resolved]
